FAERS Safety Report 12108275 (Version 4)
Quarter: 2016Q4

REPORT INFORMATION
  Report Type: Spontaneous
  Country: FR (occurrence: FR)
  Receive Date: 20160224
  Receipt Date: 20161007
  Transmission Date: 20170206
  Serious: Yes (Hospitalization, Other)
  Sender: FDA-Public Use
  Company Number: FR-TEVA-637747ACC

PATIENT
  Age: 80 Year
  Sex: Male

DRUGS (9)
  1. BENDAMUSTINE HYDROCHLORIDE. [Suspect]
     Active Substance: BENDAMUSTINE HYDROCHLORIDE
     Dosage: (CYCLE 2)
     Route: 042
     Dates: start: 20160104, end: 20160105
  2. GAZYVARO [Concomitant]
     Active Substance: OBINUTUZUMAB
     Dosage: CYCLE 3
     Route: 065
     Dates: start: 20160217
  3. GAZYVARO [Concomitant]
     Active Substance: OBINUTUZUMAB
     Dosage: CYCLE 4
     Route: 065
  4. GAZYVARO [Concomitant]
     Active Substance: OBINUTUZUMAB
     Indication: PRODUCT USED FOR UNKNOWN INDICATION
     Dosage: CYCLE 1
     Route: 065
     Dates: start: 20151207
  5. GAZYVARO [Concomitant]
     Active Substance: OBINUTUZUMAB
     Dosage: CYCLE 6
     Route: 065
     Dates: start: 20160509, end: 20160510
  6. GAZYVARO [Concomitant]
     Active Substance: OBINUTUZUMAB
     Dosage: CYCLE 5
     Route: 065
  7. BENDAMUSTINE HYDROCHLORIDE. [Suspect]
     Active Substance: BENDAMUSTINE HYDROCHLORIDE
     Indication: CHRONIC LYMPHOCYTIC LEUKAEMIA
     Dosage: (1ST CYCLE)
     Route: 042
     Dates: start: 20151207
  8. GAZYVARO [Concomitant]
     Active Substance: OBINUTUZUMAB
     Dosage: CYCLE 2
     Route: 065
     Dates: start: 20160104, end: 20160105
  9. BENDAMUSTINE HYDROCHLORIDE. [Suspect]
     Active Substance: BENDAMUSTINE HYDROCHLORIDE
     Dosage: (CYCLE 3)
     Route: 042
     Dates: start: 20160217, end: 20160218

REACTIONS (8)
  - Dermatitis exfoliative [Recovered/Resolved]
  - Pyrexia [Recovered/Resolved]
  - Chills [Recovered/Resolved]
  - Eosinophilia [Recovered/Resolved]
  - Lung disorder [Recovering/Resolving]
  - Pyrexia [Recovered/Resolved]
  - Pyrexia [Recovered/Resolved]
  - Chills [Recovered/Resolved]

NARRATIVE: CASE EVENT DATE: 20151207
